FAERS Safety Report 16462847 (Version 28)
Quarter: 2020Q4

REPORT INFORMATION
  Report Type: Spontaneous
  Country: CA (occurrence: CA)
  Receive Date: 20190621
  Receipt Date: 20201204
  Transmission Date: 20210113
  Serious: Yes (Hospitalization, Other)
  Sender: FDA-Public Use
  Company Number: CA-CELLTRION INC.-2019CA021294

PATIENT

DRUGS (35)
  1. INFLECTRA [Suspect]
     Active Substance: INFLIXIMAB-DYYB
     Indication: CROHN^S DISEASE
     Dosage: UNK, AT 0, 2 WEEKS (IN HOSPITAL)
     Route: 042
     Dates: start: 20190405, end: 20190405
  2. INFLECTRA [Suspect]
     Active Substance: INFLIXIMAB-DYYB
     Dosage: UNK, AT 0, 2 WEEKS (IN HOSPITAL)
     Route: 042
     Dates: start: 20190417, end: 20190417
  3. PREGABALIN TEVA [Concomitant]
     Active Substance: PREGABALIN
     Dosage: 25 MG, TWICE DAILY
     Route: 048
  4. INFLECTRA [Suspect]
     Active Substance: INFLIXIMAB-DYYB
     Dosage: 10 MG/KG, EVERY 4 WEEKS
     Route: 042
     Dates: start: 20191029, end: 20191029
  5. INFLECTRA [Suspect]
     Active Substance: INFLIXIMAB-DYYB
     Dosage: 10 MG/KG (RE-INDUCTION: AT 0, 2, 6, THEN EVERY 4 WEEKS)
     Route: 042
     Dates: start: 20191120
  6. INFLECTRA [Suspect]
     Active Substance: INFLIXIMAB-DYYB
     Dosage: 10 MG/KG, AT 0, 2, 6, THEN EVERY 4 WEEKS (RE-INDUCTION)
     Route: 042
     Dates: start: 20200827
  7. LOPERAMIDE TEVA [Concomitant]
     Active Substance: LOPERAMIDE
     Dosage: UNK, AS NEEDED (FOUR TIMES DAILY; MAX: 8 TABLETS A DAY)
  8. INFLECTRA [Suspect]
     Active Substance: INFLIXIMAB-DYYB
     Dosage: 10 MG/KG, RESCUE DOSE
     Route: 042
     Dates: start: 20190607, end: 20190607
  9. INFLECTRA [Suspect]
     Active Substance: INFLIXIMAB-DYYB
     Dosage: 10 MG/KG, AT 0, 2, 6, THEN EVERY 4 WEEKS (RE-INDUCTION)
     Route: 042
     Dates: start: 20191120, end: 20191120
  10. INFLECTRA [Suspect]
     Active Substance: INFLIXIMAB-DYYB
     Dosage: 10 MG/KG, AT 0, 2, 6, THEN EVERY 4 WEEKS (RE-INDUCTION)
     Route: 042
     Dates: start: 20191205, end: 20191205
  11. INFLECTRA [Suspect]
     Active Substance: INFLIXIMAB-DYYB
     Dosage: 10 MG/KG, AT 0, 2, 6, THEN EVERY 4 WEEKS (RE-INDUCTION)
     Route: 042
     Dates: start: 20200228, end: 20200228
  12. VITAMIN D [Concomitant]
     Active Substance: VITAMIN D NOS
     Dosage: 1200 MG, ONCE DAILY
     Route: 048
  13. JAMP-CALCIUM + VITAMIN D [Concomitant]
     Dosage: 500 MG, ONCE DAILY
     Route: 048
  14. INFLECTRA [Suspect]
     Active Substance: INFLIXIMAB-DYYB
     Dosage: 10 MG/KG, AT 0, 2, 6, THEN EVERY 4 WEEKS (RE-INDUCTION)
     Route: 042
     Dates: start: 20200128, end: 20200128
  15. INFLECTRA [Suspect]
     Active Substance: INFLIXIMAB-DYYB
     Dosage: 10 MG/KG, EVERY 4 WEEKS
     Route: 042
     Dates: start: 20190926, end: 20190926
  16. INFLECTRA [Suspect]
     Active Substance: INFLIXIMAB-DYYB
     Dosage: 10 MG/KG, AT 0, 2, 6, THEN EVERY 4 WEEKS (RE-INDUCTION)
     Route: 042
     Dates: start: 20200924
  17. PENTASA [Concomitant]
     Active Substance: MESALAMINE
     Dosage: UNK, ONCE DAILY (AT BEDTIME)
     Route: 054
  18. APO-AMITRIPTYLINE [Concomitant]
     Active Substance: AMITRIPTYLINE HYDROCHLORIDE
     Dosage: 2 DF, ONCE DAILY (BEFORE SLEEP)
  19. CELECOXIB. [Concomitant]
     Active Substance: CELECOXIB
     Dosage: 100 MG, TWICE DAILY (DURING 7 DAYS)
     Route: 048
  20. INFLECTRA [Suspect]
     Active Substance: INFLIXIMAB-DYYB
     Dosage: 10 MG/KG, EVERY 4 WEEKS
     Route: 042
     Dates: start: 20190705, end: 20190705
  21. INFLECTRA [Suspect]
     Active Substance: INFLIXIMAB-DYYB
     Dosage: 10 MG/KG, AT 0, 2, 6, THEN EVERY 4 WEEKS (RE-INDUCTION)
     Route: 042
     Dates: start: 20200102, end: 20200102
  22. INFLECTRA [Suspect]
     Active Substance: INFLIXIMAB-DYYB
     Dosage: 10 MG/KG, AT 0, 2, 6, THEN EVERY 4 WEEKS (RE-INDUCTION)
     Route: 042
     Dates: start: 20200522, end: 20200522
  23. INFLECTRA [Suspect]
     Active Substance: INFLIXIMAB-DYYB
     Dosage: 10 MG/KG, AT 0, 2, 6, THEN EVERY 4 WEEKS (RE-INDUCTION)
     Route: 042
     Dates: start: 20200619, end: 20200619
  24. MEZAVANT [Concomitant]
     Active Substance: MESALAMINE
     Dosage: 4 DF, ONCE DAILY
     Route: 065
  25. INFLECTRA [Suspect]
     Active Substance: INFLIXIMAB-DYYB
     Dosage: 10 MG/KG, AT WEEK 6
     Route: 042
     Dates: start: 20190503, end: 20190503
  26. INFLECTRA [Suspect]
     Active Substance: INFLIXIMAB-DYYB
     Dosage: 10 MG/KG, EVERY 4 WEEKS
     Route: 042
     Dates: start: 20190802, end: 20190802
  27. INFLECTRA [Suspect]
     Active Substance: INFLIXIMAB-DYYB
     Dosage: 10 MG/KG, EVERY 4 WEEKS
     Route: 042
     Dates: start: 20190829, end: 20190829
  28. INFLECTRA [Suspect]
     Active Substance: INFLIXIMAB-DYYB
     Dosage: 10 MG/KG EVERY 4 WEEKS
     Route: 042
     Dates: start: 20201112
  29. PREDNISONE. [Concomitant]
     Active Substance: PREDNISONE
     Dosage: UNK, ONCE DAILY
     Route: 048
     Dates: start: 201811, end: 2019
  30. PROLIA [Concomitant]
     Active Substance: DENOSUMAB
     Dosage: UNK
     Route: 058
  31. TYLENOL [Concomitant]
     Active Substance: ACETAMINOPHEN
     Indication: PYREXIA
     Dosage: UNK
     Route: 065
     Dates: start: 201910
  32. FORTEO [Concomitant]
     Active Substance: TERIPARATIDE
     Indication: OSTEOPOROSIS
     Dosage: UNK, DAILY
     Route: 058
     Dates: start: 201908
  33. INFLECTRA [Suspect]
     Active Substance: INFLIXIMAB-DYYB
     Dosage: 10 MG/KG, AT 0, 2, 6, THEN EVERY 4 WEEKS (RE-INDUCTION)
     Route: 042
     Dates: start: 20200327, end: 20200327
  34. INFLECTRA [Suspect]
     Active Substance: INFLIXIMAB-DYYB
     Dosage: 10 MG/KG, AT 0, 2, 6, THEN EVERY 4 WEEKS (RE-INDUCTION)
     Route: 042
     Dates: start: 20200729
  35. INFLECTRA [Suspect]
     Active Substance: INFLIXIMAB-DYYB
     Dosage: 10 MG/KG, AT 0, 2, 6, THEN EVERY 4 WEEKS (RE-INDUCTION)
     Route: 042
     Dates: start: 20201112

REACTIONS (34)
  - Condition aggravated [Unknown]
  - Breast cancer female [Not Recovered/Not Resolved]
  - Malaise [Not Recovered/Not Resolved]
  - Heart rate decreased [Unknown]
  - Drug level below therapeutic [Unknown]
  - Off label use [Unknown]
  - Intentional product use issue [Unknown]
  - Rhinorrhoea [Unknown]
  - Osteoporosis [Unknown]
  - Condition aggravated [Unknown]
  - Nasal congestion [Unknown]
  - Blood pressure fluctuation [Unknown]
  - Tongue discomfort [Not Recovered/Not Resolved]
  - Haematochezia [Not Recovered/Not Resolved]
  - Respiratory tract congestion [Unknown]
  - Feeling cold [Unknown]
  - Weight increased [Unknown]
  - Dehydration [Unknown]
  - Clostridium difficile infection [Recovered/Resolved]
  - Headache [Not Recovered/Not Resolved]
  - Hypoaesthesia [Unknown]
  - Tooth infection [Unknown]
  - Product use issue [Unknown]
  - Insomnia [Unknown]
  - Chills [Unknown]
  - Haemorrhoids [Unknown]
  - Tongue disorder [Not Recovered/Not Resolved]
  - Pneumonia [Unknown]
  - Fatigue [Unknown]
  - Drug ineffective [Unknown]
  - Cough [Recovered/Resolved]
  - Pyrexia [Recovered/Resolved]
  - Tongue erythema [Not Recovered/Not Resolved]
  - Blood pressure increased [Unknown]

NARRATIVE: CASE EVENT DATE: 201905
